FAERS Safety Report 7113979-4 (Version None)
Quarter: 2010Q4

REPORT INFORMATION
  Report Type: 
  Country: None (occurrence: None)
  Receive Date: 20101119
  Receipt Date: 20101115
  Transmission Date: 20110411
  Serious: Yes (Hospitalization)
  Sender: FDA-Public Use
  Company Number: A0893075A

PATIENT
  Age: 47 Year
  Sex: Female
  Weight: 61.7 kg

DRUGS (4)
  1. LAPATINIB [Suspect]
     Indication: BREAST CANCER
     Dosage: 750MG PER DAY
     Route: 048
     Dates: start: 20101105
  2. CARBOPLATIN [Suspect]
     Indication: BREAST CANCER
     Route: 042
     Dates: start: 20101105
  3. TAXOTERE [Suspect]
     Indication: BREAST CANCER
     Dosage: 75MGM2 CYCLIC
     Route: 042
     Dates: start: 20101105
  4. HERCEPTIN [Suspect]
     Indication: BREAST CANCER
     Dosage: 2MGK WEEKLY
     Route: 042
     Dates: start: 20101105

REACTIONS (8)
  - ABDOMINAL PAIN [None]
  - CHEST PAIN [None]
  - DIARRHOEA [None]
  - NAUSEA [None]
  - OROPHARYNGEAL PAIN [None]
  - PAIN IN JAW [None]
  - THROAT TIGHTNESS [None]
  - VOMITING [None]
